FAERS Safety Report 26014601 (Version 1)
Quarter: 2025Q4

REPORT INFORMATION
  Report Type: Spontaneous
  Country: US (occurrence: US)
  Receive Date: 20251108
  Receipt Date: 20251108
  Transmission Date: 20260118
  Serious: No
  Sender: SANOFI AVENTIS
  Company Number: US-SA-2025SA329817

PATIENT
  Sex: Male

DRUGS (16)
  1. DUPIXENT [Suspect]
     Active Substance: DUPILUMAB
     Indication: Adrenal gland cancer
     Dosage: 300 MG, QOW
     Route: 058
  2. ALBUTEROL SULFATE [Concomitant]
     Active Substance: ALBUTEROL SULFATE
  3. ALLOPURINOL [Concomitant]
     Active Substance: ALLOPURINOL
  4. AMITRIPTYLINE HYDROCHLORIDE [Concomitant]
     Active Substance: AMITRIPTYLINE HYDROCHLORIDE
  5. AZELASTINE HYDROCHLORIDE [Concomitant]
     Active Substance: AZELASTINE HYDROCHLORIDE
  6. CETIRIZINE HCL [Concomitant]
     Active Substance: CETIRIZINE HYDROCHLORIDE
  7. FLUTICASONE PROPIONATE [Concomitant]
     Active Substance: FLUTICASONE PROPIONATE
  8. GABAPENTIN [Concomitant]
     Active Substance: GABAPENTIN
  9. IVERMECTIN [Concomitant]
     Active Substance: IVERMECTIN
  10. KETOCONAZOLE [Concomitant]
     Active Substance: KETOCONAZOLE
  11. METFORMIN HYDROCHLORIDE [Concomitant]
     Active Substance: METFORMIN HYDROCHLORIDE
  12. METHOCARBAMOL [Concomitant]
     Active Substance: METHOCARBAMOL
  13. OXYCODONE HYDROCHLORIDE [Concomitant]
     Active Substance: OXYCODONE HYDROCHLORIDE
  14. OZEMPIC [Concomitant]
     Active Substance: SEMAGLUTIDE
  15. PREGABALIN [Concomitant]
     Active Substance: PREGABALIN
  16. TERBINAFINE HYDROCHLORIDE [Concomitant]
     Active Substance: TERBINAFINE HYDROCHLORIDE

REACTIONS (1)
  - Product use in unapproved indication [Unknown]
